FAERS Safety Report 6813281-1 (Version None)
Quarter: 2010Q3

REPORT INFORMATION
  Report Type: 
  Country: None (occurrence: None)
  Receive Date: 20100701
  Receipt Date: 20100618
  Transmission Date: 20110219
  Serious: Yes (Congenital Anomaly)
  Sender: FDA-Public Use
  Company Number: 2000SUS0218

PATIENT
  Sex: Female
  Weight: 2 kg

DRUGS (5)
  1. SUSTIVA [Suspect]
     Indication: HIV INFECTION
     Dosage: UNK UNK
     Route: 064
     Dates: start: 19981115, end: 19990205
  2. VIRACEPT [Suspect]
     Indication: HIV INFECTION
     Dosage: UNK UNK
     Route: 064
     Dates: start: 19981115
  3. COMBIVIR [Suspect]
     Indication: HIV INFECTION
     Dosage: UNK UNK
     Route: 064
     Dates: start: 19980404
  4. RETROVIR [Suspect]
     Indication: HIV INFECTION
     Dosage: UNK UNK
     Route: 064
     Dates: start: 19990920
  5. NEVIRAPINE OR PLACEBO [Suspect]
     Indication: HIV INFECTION
     Dosage: UNK UNK
     Route: 064
     Dates: start: 19990920

REACTIONS (2)
  - LARYNGOMALACIA [None]
  - PREGNANCY [None]
